FAERS Safety Report 8534387-5 (Version None)
Quarter: 2012Q3

REPORT INFORMATION
  Report Type: 
  Country: None (occurrence: None)
  Receive Date: 20120724
  Receipt Date: 20120723
  Transmission Date: 20120928
  Serious: Yes (Other)
  Sender: FDA-Public Use
  Company Number: PHHY2012HU040901

PATIENT
  Sex: Female

DRUGS (12)
  1. ZOLEDRONOC ACID [Suspect]
  2. ZOLEDRONOC ACID [Suspect]
  3. ZOLEDRONOC ACID [Suspect]
  4. ZOLEDRONOC ACID [Suspect]
  5. ZOLEDRONOC ACID [Suspect]
  6. ZOLEDRONOC ACID [Suspect]
  7. ZOLEDRONOC ACID [Suspect]
  8. ZOLEDRONOC ACID [Suspect]
  9. ZOLEDRONOC ACID [Suspect]
  10. ZOLEDRONOC ACID [Suspect]
     Indication: BONE DISORDER
     Dates: start: 20100129
  11. ZOLEDRONOC ACID [Suspect]
  12. ZOLEDRONOC ACID [Suspect]
     Dates: start: 20101210, end: 20101210

REACTIONS (2)
  - OSTEONECROSIS OF JAW [None]
  - CHRONIC SINUSITIS [None]
